FAERS Safety Report 10199541 (Version 1)
Quarter: 2014Q2

REPORT INFORMATION
  Report Type: Spontaneous
  Country: US (occurrence: None)
  Receive Date: 20140523
  Receipt Date: 20140523
  Transmission Date: 20141212
  Serious: Yes (Life-Threatening)
  Sender: FDA-Public Use
  Company Number: None

PATIENT
  Age: 83 Year
  Sex: Female
  Weight: 69.4 kg

DRUGS (2)
  1. BRILINTA [Suspect]
     Indication: ANTICOAGULANT THERAPY
  2. BRILINTA [Suspect]
     Indication: POSTOPERATIVE CARE

REACTIONS (2)
  - Lung disorder [None]
  - Diabetes mellitus [None]
